FAERS Safety Report 10374152 (Version 3)
Quarter: 2018Q1

REPORT INFORMATION
  Report Type: Report from Study
  Country: US (occurrence: US)
  Receive Date: 20140811
  Receipt Date: 20180314
  Transmission Date: 20180508
  Serious: Yes (Other)
  Sender: FDA-Public Use
  Company Number: US-ROCHE-1446985

PATIENT
  Age: 88 Year
  Sex: Male

DRUGS (19)
  1. K-DUR [Concomitant]
     Active Substance: POTASSIUM CHLORIDE
     Route: 048
  2. PRILOSEC [Concomitant]
     Active Substance: OMEPRAZOLE MAGNESIUM
     Route: 048
  3. DELTASONE [Concomitant]
     Active Substance: PREDNISONE
     Route: 048
  4. ZOCOR [Concomitant]
     Active Substance: SIMVASTATIN
     Route: 048
  5. NUTROPIN AQ [Suspect]
     Active Substance: SOMATROPIN
     Indication: HYPOPITUITARISM
  6. SYNTHROID [Concomitant]
     Active Substance: LEVOTHYROXINE SODIUM
     Route: 065
  7. FLOMAX [Concomitant]
     Active Substance: TAMSULOSIN HYDROCHLORIDE
     Route: 048
  8. SODIUM CHLORIDE. [Concomitant]
     Active Substance: SODIUM CHLORIDE
     Route: 048
  9. CITRACAL + D [Concomitant]
     Active Substance: CALCIUM CITRATE\VITAMIN D
     Dosage: 1 TABLET, 600 MG CALCIUM AND 500 UNITS VIT D
     Route: 048
  10. TESTOSTERONE. [Concomitant]
     Active Substance: TESTOSTERONE
  11. PREDNISONE. [Concomitant]
     Active Substance: PREDNISONE
     Route: 048
  12. COUMADIN [Concomitant]
     Active Substance: WARFARIN SODIUM
     Dosage: FIVE DAYS PER WEEK
     Route: 048
  13. FERGON (UNITED STATES) [Concomitant]
     Dosage: 1 TAB
     Route: 048
  14. NUTROPIN AQ [Suspect]
     Active Substance: SOMATROPIN
     Indication: HYPOPITUITARISM
     Route: 058
  15. FLOMAX [Concomitant]
     Active Substance: TAMSULOSIN HYDROCHLORIDE
     Route: 048
  16. READI-CAT 2 [Concomitant]
     Active Substance: BARIUM SULFATE
     Route: 048
  17. PACERONE [Concomitant]
     Active Substance: AMIODARONE HYDROCHLORIDE
     Route: 048
  18. PROSCAR [Concomitant]
     Active Substance: FINASTERIDE
     Route: 048
  19. GLUCOTROL [Concomitant]
     Active Substance: GLIPIZIDE
     Route: 048

REACTIONS (3)
  - Thyroid mass [Unknown]
  - Thrombosis [Unknown]
  - Blood testosterone free increased [Unknown]

NARRATIVE: CASE EVENT DATE: 20130205
